FAERS Safety Report 6295463-3 (Version None)
Quarter: 2009Q3

REPORT INFORMATION
  Report Type: 
  Country: None (occurrence: None)
  Receive Date: 20090730
  Receipt Date: 20090715
  Transmission Date: 20100115
  Serious: Yes (Other)
  Sender: FDA-Public Use
  Company Number: B0585481A

PATIENT
  Sex: 0

DRUGS (2)
  1. PAROXETINE HCL [Suspect]
     Dosage: TRANSPLACENTARY
     Route: 064
  2. VENLAFAXINE HCL [Suspect]
     Dosage: TRANSPLACENTARY
     Route: 064

REACTIONS (8)
  - DRUG TOXICITY [None]
  - FEEDING DISORDER NEONATAL [None]
  - HYPERHIDROSIS [None]
  - HYPERTHERMIA [None]
  - INSOMNIA [None]
  - MATERNAL DRUGS AFFECTING FOETUS [None]
  - TREMOR [None]
  - VOMITING [None]
